FAERS Safety Report 20924365 (Version 1)
Quarter: 2022Q2

REPORT INFORMATION
  Report Type: Spontaneous
  Country: AT (occurrence: None)
  Receive Date: 20220607
  Receipt Date: 20220607
  Transmission Date: 20220721
  Serious: Yes (Other)
  Sender: FDA-Public Use
  Company Number: 2022A201471

PATIENT
  Age: 82 Year
  Sex: Male

DRUGS (11)
  1. DAPAGLIFLOZIN [Suspect]
     Active Substance: DAPAGLIFLOZIN
     Dosage: 10 MG DAILY, 10 MG AT LUNCHTIME
     Route: 048
     Dates: start: 20220410, end: 20220411
  2. LERCANIDIPINE [Concomitant]
     Active Substance: LERCANIDIPINE
     Dosage: LERCANDIPIN 10 MG ? - 0 - ?
     Dates: start: 20210920
  3. MIRTAZAPINE [Concomitant]
     Active Substance: MIRTAZAPINE
     Dosage: 0-0 0-?
  4. ASPIRIN [Concomitant]
     Active Substance: ASPIRIN
     Dosage: EVERY OTHER DAY
  5. ALLOPURINOL [Concomitant]
     Active Substance: ALLOPURINOL
     Dosage: 100 MG DAILY, 1X AT NOON AFTER A MEAL
     Dates: start: 20210518
  6. PAROXETINE HYDROCHLORIDE [Concomitant]
     Active Substance: PAROXETINE HYDROCHLORIDE
     Dosage: 1/2-0-0 LONG TERM ADMINISTRATION AB 16.7.21 1-0-0; 4. 2. - 4. 3. 22 1-1-0 ; AB 5. 3. ?1-0-0
  7. EUTHYROX [Concomitant]
     Active Substance: LEVOTHYROXINE SODIUM
     Dosage: 1/2 -0 ? 0 LONG TERM ADMINISTRATION
  8. JARDIANCE [Concomitant]
     Active Substance: EMPAGLIFLOZIN
     Dosage: 1-0-0 EVERY OTHER DAY
  9. FOLIC ACID [Concomitant]
     Active Substance: FOLIC ACID
     Dosage: FRIDAY 1X
  10. PANTOPRAZOLE SODIUM [Concomitant]
     Active Substance: PANTOPRAZOLE SODIUM
     Dosage: PARTLY (OCCASIONALLY, APPROX. 1X A MONTH AS REQUIRED)
  11. OLEOVIT [Concomitant]
     Dosage: 30 GTT PER WEEK, IN WINTER THROUGH LATE SPRING, 30 GTT ONCE A WEEK

REACTIONS (3)
  - Blood urine present [Recovered/Resolved]
  - Urethral pain [Recovered/Resolved]
  - Dysuria [Recovered/Resolved]

NARRATIVE: CASE EVENT DATE: 20220412
